FAERS Safety Report 10173027 (Version 1)
Quarter: 2014Q2

REPORT INFORMATION
  Report Type: Spontaneous
  Country: US (occurrence: None)
  Receive Date: 20140514
  Receipt Date: 20140514
  Transmission Date: 20141212
  Serious: Yes (Other)
  Sender: FDA-Public Use
  Company Number: None

PATIENT
  Age: 54 Year
  Sex: Female
  Weight: 68.04 kg

DRUGS (3)
  1. LEVAQUIN 750MG [Suspect]
     Indication: DYSPNOEA
     Dosage: ONE TAB DAILY/ SEVEN PILLS
     Dates: start: 20131211, end: 20131218
  2. LEVAQUIN 750MG [Suspect]
     Indication: FATIGUE
     Dosage: ONE TAB DAILY/ SEVEN PILLS
     Dates: start: 20131211, end: 20131218
  3. LEVAQUIN 750MG [Suspect]
     Indication: MALAISE
     Dosage: ONE TAB DAILY/ SEVEN PILLS
     Dates: start: 20131211, end: 20131218

REACTIONS (3)
  - Pain in extremity [None]
  - Peripheral swelling [None]
  - Pain in extremity [None]
